FAERS Safety Report 8935308 (Version 1)
Quarter: 2012Q4

REPORT INFORMATION
  Report Type: 
  Country: FR (occurrence: FR)
  Receive Date: 20121129
  Receipt Date: 20121129
  Transmission Date: 20130627
  Serious: Yes (Other)
  Sender: FDA-Public Use
  Company Number: FR-GLAXOSMITHKLINE-B0848166A

PATIENT
  Age: 25 Year
  Sex: Female

DRUGS (4)
  1. LAMICTAL [Suspect]
     Indication: EPILEPSY
     Route: 048
  2. STEDIRIL [Suspect]
     Indication: ORAL CONTRACEPTION
     Dosage: 1UNIT Per day
     Route: 048
  3. VALPROATE SODIUM [Suspect]
     Indication: EPILEPSY
     Dosage: 900MG per day
     Route: 048
  4. URBANYL [Suspect]
     Indication: EPILEPSY
     Route: 048

REACTIONS (1)
  - Pulmonary embolism [Recovered/Resolved]
